FAERS Safety Report 20814295 (Version 1)
Quarter: 2022Q2

REPORT INFORMATION
  Report Type: Spontaneous
  Country: US (occurrence: US)
  Receive Date: 20220511
  Receipt Date: 20220511
  Transmission Date: 20220721
  Serious: Yes (Death, Other)
  Sender: FDA-Public Use
  Company Number: US-BRISTOL-MYERS SQUIBB COMPANY-2022-032735

PATIENT
  Age: 87 Year
  Sex: Female
  Weight: 60.328 kg

DRUGS (18)
  1. POMALYST [Suspect]
     Active Substance: POMALIDOMIDE
     Indication: Plasma cell myeloma
     Route: 048
     Dates: start: 20181203
  2. ELIQUIS [Concomitant]
     Active Substance: APIXABAN
  3. BACLOFEN [Concomitant]
     Active Substance: BACLOFEN
  4. METOLAZONE [Concomitant]
     Active Substance: METOLAZONE
  5. ERGOCALCIFEROL [Concomitant]
     Active Substance: ERGOCALCIFEROL
  6. CARAFATE [Concomitant]
     Active Substance: SUCRALFATE
  7. METOPROLOL [Concomitant]
     Active Substance: METOPROLOL
  8. DECADRON [Concomitant]
     Active Substance: DEXAMETHASONE
  9. FISH OIL [Concomitant]
     Active Substance: FISH OIL
  10. DIAZEPAM [Concomitant]
     Active Substance: DIAZEPAM
  11. OMEPRAZOLE [Concomitant]
     Active Substance: OMEPRAZOLE
  12. SALONPAS LIDOCAINE [Concomitant]
  13. HYDROCODONE [Concomitant]
     Active Substance: HYDROCODONE
  14. SPIRONOLACTONE [Concomitant]
     Active Substance: SPIRONOLACTONE
  15. SYNTHROID [Concomitant]
     Active Substance: LEVOTHYROXINE SODIUM
  16. SYSTANE (HYPROMELLOSE 2910 (4000 MPA.S)) [Concomitant]
     Active Substance: HYPROMELLOSE 2910 (4000 MPA.S)
  17. LINEZOLID [Concomitant]
     Active Substance: LINEZOLID
  18. VITAMIN B12 [Concomitant]
     Active Substance: CYANOCOBALAMIN

REACTIONS (1)
  - Death [Fatal]
